FAERS Safety Report 6728517-5 (Version None)
Quarter: 2010Q2

REPORT INFORMATION
  Report Type: 
  Country: None (occurrence: None)
  Receive Date: 20100517
  Receipt Date: 20100510
  Transmission Date: 20101027
  Serious: Yes (Other)
  Sender: FDA-Public Use
  Company Number: US-PFIZER INC-2010033791

PATIENT
  Sex: Female
  Weight: 54.875 kg

DRUGS (2)
  1. CHANTIX [Suspect]
     Indication: SMOKING CESSATION THERAPY
     Dosage: 1 MG, 2X/DAY
     Route: 048
     Dates: start: 20100304
  2. KLONOPIN [Concomitant]
     Indication: ANXIETY
     Dosage: UNK

REACTIONS (7)
  - ABNORMAL DREAMS [None]
  - ANXIETY [None]
  - DEPRESSED MOOD [None]
  - ENERGY INCREASED [None]
  - NERVOUSNESS [None]
  - RESTLESSNESS [None]
  - TOBACCO WITHDRAWAL SYMPTOMS [None]
